FAERS Safety Report 23757536 (Version 1)
Quarter: 2024Q2

REPORT INFORMATION
  Report Type: Spontaneous
  Country: FR (occurrence: FR)
  Receive Date: 20240418
  Receipt Date: 20240418
  Transmission Date: 20240716
  Serious: Yes (Hospitalization)
  Sender: FDA-Public Use
  Company Number: None

PATIENT
  Age: 71 Year
  Sex: Female
  Weight: 63 kg

DRUGS (4)
  1. FLUCONAZOLE [Suspect]
     Active Substance: FLUCONAZOLE
     Indication: Device related infection
     Dosage: 400 MG, 1X/DAY
     Route: 042
     Dates: start: 20230912, end: 20240208
  2. FLAGYL [Suspect]
     Active Substance: METRONIDAZOLE\METRONIDAZOLE HYDROCHLORIDE
     Indication: Device related infection
     Dosage: 1500 MG, 1X/DAY
     Route: 042
     Dates: start: 20231124, end: 20240208
  3. CEFEPIME HYDROCHLORIDE [Suspect]
     Active Substance: CEFEPIME HYDROCHLORIDE
     Indication: Device related infection
     Dosage: 6 G, 1X/DAY
     Route: 042
     Dates: start: 20231225, end: 20240208
  4. CIPROFLOXACIN HYDROCHLORIDE [Suspect]
     Active Substance: CIPROFLOXACIN HYDROCHLORIDE
     Indication: Device related infection
     Dosage: 1500 MG, 1X/DAY
     Route: 048
     Dates: start: 20231124, end: 20240208

REACTIONS (3)
  - Cardiogenic shock [Recovered/Resolved]
  - Coma [Recovered/Resolved]
  - Encephalopathy [Recovered/Resolved]

NARRATIVE: CASE EVENT DATE: 20240127
